FAERS Safety Report 9254514 (Version 1)
Quarter: 2013Q1

REPORT INFORMATION
  Report Type: Spontaneous
  Country: US (occurrence: None)
  Receive Date: 20121203
  Receipt Date: 20121203
  Transmission Date: 20140127
  Serious: Yes (Hospitalization)
  Sender: FDA-Public Use
  Company Number: 2012SP011814

PATIENT
  Age: 29 Year
  Sex: Female
  Weight: 59.9 kg

DRUGS (1)
  1. NUVARING [Suspect]
     Indication: CONTRACEPTION
     Route: 067
     Dates: start: 200901, end: 20100301

REACTIONS (14)
  - Pulmonary embolism [None]
  - Myalgia [None]
  - Headache [None]
  - Pharyngitis [None]
  - Pulmonary infarction [None]
  - Synovial cyst [None]
  - Seborrhoeic keratosis [None]
  - Depression [None]
  - Osteopenia [None]
  - Melanocytic naevus [None]
  - Cyst [None]
  - Sinus polyp [None]
  - Bronchitis [None]
  - Vaginitis bacterial [None]
